FAERS Safety Report 10230982 (Version 2)
Quarter: 2014Q2

REPORT INFORMATION
  Report Type: Spontaneous
  Country: DE (occurrence: DE)
  Receive Date: 20140611
  Receipt Date: 20140620
  Transmission Date: 20141212
  Serious: Yes (Hospitalization, Other)
  Sender: FDA-Public Use
  Company Number: DE-PFIZER INC-2014155064

PATIENT
  Age: 67 Year
  Sex: Female

DRUGS (3)
  1. RAMIPRIL [Suspect]
     Dosage: 10 DF, 1X/DAY, INTAKE FOR YEARS
     Route: 048
     Dates: end: 20140129
  2. TIMONIL [Suspect]
     Dosage: 600 MG, 1X/DAY
     Route: 048
     Dates: start: 20140129, end: 20140201
  3. DISTRANEURIN [Concomitant]
     Dosage: 2 DF, 1X/DAY
     Dates: start: 20140129

REACTIONS (8)
  - Hyponatraemia [Recovered/Resolved]
  - Disorientation [Unknown]
  - Agitation [Unknown]
  - Abnormal behaviour [Unknown]
  - Delirium [Unknown]
  - Nausea [Unknown]
  - Disturbance in attention [Unknown]
  - Dizziness [Unknown]
